FAERS Safety Report 6257973-4 (Version None)
Quarter: 2009Q3

REPORT INFORMATION
  Report Type: 
  Country: None (occurrence: None)
  Receive Date: 20090707
  Receipt Date: 20090629
  Transmission Date: 20100115
  Serious: No
  Sender: FDA-Public Use
  Company Number: US-JNJFOC-20090700376

PATIENT
  Sex: Male
  Weight: 99.79 kg

DRUGS (3)
  1. DURAGESIC-100 [Suspect]
     Route: 062
  2. DURAGESIC-100 [Suspect]
     Indication: PAIN
     Route: 062
  3. ANTIBIOTICS [Interacting]
     Indication: FURUNCLE
     Route: 048

REACTIONS (7)
  - DEVICE ADHESION ISSUE [None]
  - DIARRHOEA [None]
  - DRUG INTERACTION [None]
  - FURUNCLE [None]
  - HYPERHIDROSIS [None]
  - INAPPROPRIATE SCHEDULE OF DRUG ADMINISTRATION [None]
  - WITHDRAWAL SYNDROME [None]
